FAERS Safety Report 10885410 (Version 1)
Quarter: 2015Q1

REPORT INFORMATION
  Report Type: Report from Study
  Country: RU (occurrence: RU)
  Receive Date: 20150304
  Receipt Date: 20150304
  Transmission Date: 20150721
  Serious: Yes (Other)
  Sender: FDA-Public Use
  Company Number: RU-SA-2015SA025372

PATIENT
  Age: 66 Year
  Sex: Female
  Weight: 84 kg

DRUGS (3)
  1. ZOCARDIS [Concomitant]
     Indication: HYPERTENSION
     Route: 048
     Dates: start: 201501
  2. CHOPHYTOL [Concomitant]
     Route: 048
     Dates: start: 20150201
  3. PLAVIX [Suspect]
     Active Substance: CLOPIDOGREL BISULFATE
     Indication: THROMBOSIS PROPHYLAXIS
     Route: 048
     Dates: start: 20150201

REACTIONS (1)
  - Chest pain [Not Recovered/Not Resolved]

NARRATIVE: CASE EVENT DATE: 201502
